FAERS Safety Report 12676388 (Version 1)
Quarter: 2016Q3

REPORT INFORMATION
  Report Type: Spontaneous
  Country: HR (occurrence: HR)
  Receive Date: 20160823
  Receipt Date: 20160823
  Transmission Date: 20161109
  Serious: Yes (Life-Threatening, Other)
  Sender: FDA-Public Use
  Company Number: HR-TEVA-684323ACC

PATIENT
  Sex: Female

DRUGS (6)
  1. EPRIL [Suspect]
     Active Substance: ENALAPRIL MALEATE
     Indication: LIPID METABOLISM DISORDER
     Dosage: 10 MILLIGRAM DAILY;
     Route: 048
  2. CONCOR COR [Concomitant]
     Active Substance: BISOPROLOL FUMARATE
     Dosage: 1.25 MILLIGRAM DAILY;
     Route: 048
  3. ISMN GENERICON [Concomitant]
     Route: 048
  4. RAMZID [Concomitant]
     Route: 048
  5. SIOFOR 500 [Concomitant]
     Route: 048
  6. SORTIS [Suspect]
     Active Substance: ATORVASTATIN
     Indication: LIPID METABOLISM DISORDER
     Dosage: 20 MILLIGRAM DAILY;
     Route: 048
     Dates: end: 20160701

REACTIONS (4)
  - Intercepted drug dispensing error [Recovered/Resolved]
  - Pain in extremity [Not Recovered/Not Resolved]
  - Drug prescribing error [Recovered/Resolved]
  - Renal pain [Not Recovered/Not Resolved]
